FAERS Safety Report 5123728-7 (Version None)
Quarter: 2006Q3

REPORT INFORMATION
  Report Type: 
  Country: None (occurrence: None)
  Receive Date: 20060811
  Receipt Date: 20060518
  Transmission Date: 20061208
  Serious: No
  Sender: FDA-Public Use
  Company Number: S06-USA-01902-01

PATIENT
  Age: 55 Year
  Sex: Female

DRUGS (17)
  1. NAMENDA [Suspect]
     Indication: HEADACHE
     Dosage: 5 MG BID PO
     Route: 048
     Dates: start: 20060512
  2. NAMENDA [Suspect]
     Indication: PAIN
     Dosage: 5 MG BID PO
     Route: 048
     Dates: start: 20060512
  3. NAMENDA [Suspect]
     Indication: HEADACHE
     Dosage: 5 MG QD PO
     Route: 048
     Dates: start: 20060505, end: 20060511
  4. NAMENDA [Suspect]
     Indication: PAIN
     Dosage: 5 MG QD PO
     Route: 048
     Dates: start: 20060505, end: 20060511
  5. LASIX [Concomitant]
  6. DELTASONE [Concomitant]
  7. SINGULAIR [Concomitant]
  8. PROMETRIUM [Concomitant]
  9. METHOTREXATE [Concomitant]
  10. MIRAPEX [Concomitant]
  11. TRAZODONE HCL [Concomitant]
  12. ESTROGENS SOL/INJ [Concomitant]
  13. BUSPAR [Concomitant]
  14. OMEPRAZOLE [Concomitant]
  15. MORPHINE [Concomitant]
  16. ATIVAN [Concomitant]
  17. COUMADIN [Concomitant]

REACTIONS (2)
  - BLOOD PRESSURE INCREASED [None]
  - HEART RATE INCREASED [None]
